FAERS Safety Report 7515095-6 (Version None)
Quarter: 2011Q2

REPORT INFORMATION
  Report Type: 
  Country: None (occurrence: None)
  Receive Date: 20110601
  Receipt Date: 20091105
  Transmission Date: 20111010
  Serious: Yes (Hospitalization, Other)
  Sender: FDA-Public Use
  Company Number: US-BAYER-2011-006819

PATIENT
  Age: 44 Year
  Sex: Male
  Weight: 113 kg

DRUGS (18)
  1. NEOSYNEPHRINE [Concomitant]
     Dosage: 1 GRAM
     Dates: start: 20070101
  2. HEPARIN [Concomitant]
     Dosage: 35000 UNITS
     Dates: start: 20070101
  3. ATIVAN [Concomitant]
     Dosage: 0.5 MG, TID
     Route: 048
  4. PLAVIX [Concomitant]
     Dosage: 300 MG NOW
     Route: 048
     Dates: start: 20061229, end: 20061229
  5. TRASYLOL [Suspect]
     Indication: CORONARY ARTERY BYPASS
     Dosage: 200 ML, ONCE, LOADING DOSE
     Route: 042
     Dates: start: 20070101
  6. LOVENOX [Concomitant]
     Dosage: 90 MG EVERY 12 HOURS
     Route: 058
     Dates: start: 20061228, end: 20061228
  7. HEPARIN [Concomitant]
     Dosage: 6000 UNITS
     Route: 042
     Dates: start: 20061229
  8. LOPRESSOR [Concomitant]
     Dosage: 25 MG
     Route: 048
  9. NITROGLYCERIN [Concomitant]
     Dosage: 33.3 MICROGRAMS/MINUTE
     Dates: start: 20070101, end: 20070101
  10. INSULIN [Concomitant]
     Dosage: 4 UNITS
     Route: 042
     Dates: start: 20070101, end: 20070101
  11. DOPAMINE HCL [Concomitant]
     Dosage: 20
     Dates: start: 20070101
  12. INFLUENZA VACCINE [Concomitant]
     Dosage: 0.5 ML
     Route: 030
     Dates: start: 20061229, end: 20061229
  13. ETOMIDATE [Concomitant]
     Dosage: 20 MG
     Dates: start: 20070101
  14. LEXAPRO [Concomitant]
     Dosage: 5 MG, QD
     Route: 048
  15. ACETYLSALICYLIC ACID SRT [Concomitant]
     Dosage: 325 MG, QD
     Route: 048
     Dates: start: 20061228
  16. CEFUROXIME [Concomitant]
     Dosage: 1.5 GRAM
     Dates: start: 20070101
  17. PROTAMINE SULFATE [Concomitant]
     Dosage: 350 MG
     Dates: start: 20070101
  18. CALCIUM CHLORIDE [Concomitant]
     Dosage: 1 GRAM
     Dates: start: 20070101

REACTIONS (11)
  - RENAL FAILURE [None]
  - STRESS [None]
  - INJURY [None]
  - RENAL INJURY [None]
  - EMOTIONAL DISTRESS [None]
  - FEAR [None]
  - HEPATITIS ACUTE [None]
  - RENAL IMPAIRMENT [None]
  - ANXIETY [None]
  - UNEVALUABLE EVENT [None]
  - PAIN [None]
